FAERS Safety Report 4940017-1 (Version None)
Quarter: 2006Q1

REPORT INFORMATION
  Report Type: 
  Country: None (occurrence: None)
  Receive Date: 20060310
  Receipt Date: 20060224
  Transmission Date: 20060701
  Serious: Yes (Hospitalization)
  Sender: FDA-Public Use
  Company Number: US-BRISTOL-MYERS SQUIBB COMPANY-13300777

PATIENT

DRUGS (2)
  1. CARBOPLATIN [Suspect]
  2. DOCETAXEL [Suspect]

REACTIONS (1)
  - COLITIS [None]
